FAERS Safety Report 9437710 (Version 1)
Quarter: 2013Q3

REPORT INFORMATION
  Report Type: Report from Study
  Country: US (occurrence: US)
  Receive Date: 20130802
  Receipt Date: 20130802
  Transmission Date: 20140515
  Serious: Yes (Life-Threatening)
  Sender: FDA-Public Use
  Company Number: PHEH2013US015902

PATIENT
  Sex: Female

DRUGS (1)
  1. GILENYA [Suspect]
     Dosage: 0.5 MG, DAILY
     Route: 048

REACTIONS (4)
  - Feeling abnormal [Unknown]
  - Nausea [Unknown]
  - Weight decreased [Unknown]
  - Heart rate decreased [Unknown]
